FAERS Safety Report 26055322 (Version 2)
Quarter: 2025Q4

REPORT INFORMATION
  Report Type: Spontaneous
  Country: IN (occurrence: IN)
  Receive Date: 20251117
  Receipt Date: 20251224
  Transmission Date: 20260117
  Serious: Yes (Life-Threatening, Hospitalization, Other)
  Sender: ELI LILLY AND COMPANY
  Company Number: IN-ELI_LILLY_AND_COMPANY-IN202511012335

PATIENT
  Age: 55 Year
  Sex: Female
  Weight: 94 kg

DRUGS (3)
  1. MOUNJARO [Suspect]
     Active Substance: TIRZEPATIDE
     Indication: Product used for unknown indication
     Dosage: UNK UNK, WEEKLY (1/W)
     Route: 058
  2. MOUNJARO [Suspect]
     Active Substance: TIRZEPATIDE
     Indication: Product used for unknown indication
     Dosage: 5 MG, WEEKLY (1/W)
     Route: 058
  3. MOUNJARO [Suspect]
     Active Substance: TIRZEPATIDE
     Indication: Product used for unknown indication
     Dosage: 5 MG, WEEKLY (1/W)
     Route: 058

REACTIONS (2)
  - Impaired gastric emptying [Unknown]
  - Intestinal obstruction [Unknown]

NARRATIVE: CASE EVENT DATE: 20251018
